FAERS Safety Report 9017877 (Version 1)
Quarter: 2013Q1

REPORT INFORMATION
  Report Type: Spontaneous
  Country: US (occurrence: US)
  Receive Date: 20130118
  Receipt Date: 20130118
  Transmission Date: 20140127
  Serious: No
  Sender: FDA-Public Use
  Company Number: US-BIOGENIDEC-2013BI003358

PATIENT
  Age: 51 Year
  Sex: Female

DRUGS (4)
  1. TYSABRI [Suspect]
     Indication: MULTIPLE SCLEROSIS
     Route: 042
     Dates: start: 20101111, end: 20120314
  2. REBIF [Concomitant]
  3. ACTHAR [Concomitant]
  4. CYMBALTA [Concomitant]
     Indication: DEPRESSION

REACTIONS (1)
  - Fatigue [Recovered/Resolved]
